FAERS Safety Report 13531011 (Version 1)
Quarter: 2017Q2

REPORT INFORMATION
  Report Type: Spontaneous
  Country: US (occurrence: US)
  Receive Date: 20170510
  Receipt Date: 20170510
  Transmission Date: 20170830
  Serious: Yes (Other)
  Sender: FDA-Public Use
  Company Number: US-ORION CORPORATION ORION PHARMA-NADO2017-0003

PATIENT
  Age: 4 Month
  Sex: Female

DRUGS (1)
  1. NADOLOL. [Suspect]
     Active Substance: NADOLOL
     Indication: SUPRAVENTRICULAR TACHYCARDIA
     Route: 065

REACTIONS (2)
  - Bradycardia [Recovered/Resolved]
  - Atrioventricular block second degree [Unknown]
